FAERS Safety Report 15153679 (Version 4)
Quarter: 2018Q4

REPORT INFORMATION
  Report Type: Spontaneous
  Country: JP (occurrence: JP)
  Receive Date: 20180717
  Receipt Date: 20181003
  Transmission Date: 20190204
  Serious: Yes (Other)
  Sender: FDA-Public Use
  Company Number: JP-GLAXOSMITHKLINE-JP2018JPN122737

PATIENT
  Age: 66 Year
  Sex: Male

DRUGS (5)
  1. GENINAX [Concomitant]
     Active Substance: GARENOXACIN MESYLATE
     Dosage: UNK
  2. LOXOPROFEN SODIUM TABLETS [Concomitant]
     Dosage: UNK
  3. RELVAR ELLIPTA [Suspect]
     Active Substance: FLUTICASONE FUROATE\VILANTEROL TRIFENATATE
     Indication: ASTHMA
     Dosage: 200 ?G, QD
     Route: 055
     Dates: start: 20180611, end: 20180625
  4. CELESTANA COMBINATION TABLETS (BETAMETHASONE + DEXCHLORPHENIRAMINE MAL [Concomitant]
     Dosage: UNK, TID
  5. RELVAR ELLIPTA [Suspect]
     Active Substance: FLUTICASONE FUROATE\VILANTEROL TRIFENATATE
     Indication: COUGH

REACTIONS (1)
  - Oesophageal candidiasis [Recovered/Resolved]

NARRATIVE: CASE EVENT DATE: 20180619
